FAERS Safety Report 7652562-9 (Version None)
Quarter: 2011Q3

REPORT INFORMATION
  Report Type: 
  Country: None (occurrence: None)
  Receive Date: 20110803
  Receipt Date: 20110801
  Transmission Date: 20111222
  Serious: Yes (Hospitalization)
  Sender: FDA-Public Use
  Company Number: US-BRISTOL-MYERS SQUIBB COMPANY-15939200

PATIENT
  Age: 47 Year
  Sex: Male

DRUGS (3)
  1. FLUDARA [Suspect]
     Indication: CHRONIC LYMPHOCYTIC LEUKAEMIA
     Dosage: 1DF:483 UNITS NOS FREQ:DAY 1-3
     Route: 042
     Dates: start: 20110228
  2. CYTOXAN [Suspect]
     Indication: CHRONIC LYMPHOCYTIC LEUKAEMIA
     Dosage: 1DF:483 UNITS NOS FREQ:DAY 1-3
     Route: 042
     Dates: start: 20110228
  3. RITUXAN [Suspect]
     Indication: CHRONIC LYMPHOCYTIC LEUKAEMIA
     Dosage: 1DF:965 UNITS NOS DAY 1
     Route: 042
     Dates: start: 20110228

REACTIONS (4)
  - NAUSEA [None]
  - HAEMATOCHEZIA [None]
  - DIARRHOEA [None]
  - VOMITING [None]
